FAERS Safety Report 23616147 (Version 1)
Quarter: 2024Q1

REPORT INFORMATION
  Report Type: Spontaneous
  Country: CA (occurrence: CA)
  Receive Date: 20240311
  Receipt Date: 20240311
  Transmission Date: 20240409
  Serious: Yes (Other)
  Sender: FDA-Public Use
  Company Number: None

PATIENT
  Age: 75 Year
  Sex: Female

DRUGS (4)
  1. METHOTREXATE [Suspect]
     Active Substance: METHOTREXATE
     Indication: Product used for unknown indication
     Route: 065
  2. HUMIRA [Concomitant]
     Active Substance: ADALIMUMAB
  3. TYLENOL [Concomitant]
     Active Substance: ACETAMINOPHEN
  4. HUMIRA [Concomitant]
     Active Substance: ADALIMUMAB
     Dosage: SUBCUTANEOUS

REACTIONS (1)
  - Myocardial infarction [Unknown]
